FAERS Safety Report 6343042-1 (Version None)
Quarter: 2009Q3

REPORT INFORMATION
  Report Type: 
  Country: None (occurrence: None)
  Receive Date: 20090908
  Receipt Date: 20090826
  Transmission Date: 20100115
  Serious: Yes (Other)
  Sender: FDA-Public Use
  Company Number: SG-ROCHE-650225

PATIENT
  Age: 56 Year
  Sex: Male

DRUGS (5)
  1. TAMIFLU [Suspect]
     Route: 048
     Dates: start: 20090801, end: 20090805
  2. DEXTROMETHORPHAN HYDROBROMIDE [Concomitant]
     Dosage: DRUG NAME REPORTED AS DEXTROMETHORPHAN
     Route: 048
     Dates: start: 20090801
  3. DHASEDYL [Concomitant]
     Route: 048
     Dates: start: 20090801
  4. PARACETAMOL [Concomitant]
     Route: 048
  5. SERRATIOPEPTIDASE [Concomitant]
     Dosage: DRUG NAME REPORTED AS SERRAZYME
     Route: 048
     Dates: start: 20090801

REACTIONS (4)
  - ABNORMAL DREAMS [None]
  - EYE PAIN [None]
  - LETHARGY [None]
  - SOMNOLENCE [None]
